FAERS Safety Report 16062211 (Version 1)
Quarter: 2019Q1

REPORT INFORMATION
  Report Type: Report from Study
  Country: DE (occurrence: DE)
  Receive Date: 20190312
  Receipt Date: 20190312
  Transmission Date: 20190418
  Serious: Yes (Other)
  Sender: FDA-Public Use
  Company Number: DE-ROCHE-GNE294426

PATIENT
  Age: 8 Year
  Sex: Female
  Weight: 24.73 kg

DRUGS (5)
  1. SOMATROPIN. [Suspect]
     Active Substance: SOMATROPIN
     Route: 058
     Dates: start: 200608, end: 200703
  2. SOMATROPIN. [Suspect]
     Active Substance: SOMATROPIN
     Indication: GROWTH HORMONE DEFICIENCY
     Dosage: 0.8 MG, 7/WEEK
     Route: 058
     Dates: start: 200901
  3. SOMATROPIN. [Suspect]
     Active Substance: SOMATROPIN
     Indication: GROWTH FAILURE
     Route: 058
     Dates: start: 20050707, end: 200608
  4. SOMATROPIN. [Suspect]
     Active Substance: SOMATROPIN
     Route: 058
     Dates: start: 200703, end: 200805
  5. SOMATROPIN. [Suspect]
     Active Substance: SOMATROPIN
     Route: 058
     Dates: start: 200805, end: 200901

REACTIONS (2)
  - Intracranial pressure increased [Recovering/Resolving]
  - Headache [Recovering/Resolving]

NARRATIVE: CASE EVENT DATE: 20090301
